FAERS Safety Report 24704571 (Version 1)
Quarter: 2024Q4

REPORT INFORMATION
  Report Type: Spontaneous
  Country: NL (occurrence: NL)
  Receive Date: 20241206
  Receipt Date: 20241206
  Transmission Date: 20250115
  Serious: Yes (Other)
  Sender: AUROBINDO
  Company Number: NL-LRB-01015398

PATIENT
  Age: 39 Year
  Sex: Male
  Weight: 111 kg

DRUGS (7)
  1. METOPROLOL [Suspect]
     Active Substance: METOPROLOL
     Indication: Blood pressure measurement
     Dosage: 200 MILLIGRAM, ONCE A DAY (1X PER DAG 1 STUK)
     Route: 048
     Dates: start: 20171120
  2. AMLODIPINE [Suspect]
     Active Substance: AMLODIPINE BESYLATE
     Indication: Blood pressure measurement
     Dosage: 10 MILLIGRAM, ONCE A DAY (1 X PER DAG 1 STUK)
     Route: 048
     Dates: start: 20230413
  3. TELMISARTAN [Suspect]
     Active Substance: TELMISARTAN
     Indication: Blood pressure measurement
     Dosage: 80 MILLIGRAM, ONCE A DAY (1X PER DAG 1 STUK)
     Route: 048
     Dates: start: 20221013
  4. ATORVASTATIN [Concomitant]
     Active Substance: ATORVASTATIN
     Indication: Product used for unknown indication
     Dosage: TABLET, 80 MG (MILLIGRAM)
     Route: 048
  5. METFORMIN HYDROCHLORIDE [Concomitant]
     Active Substance: METFORMIN HYDROCHLORIDE
     Indication: Product used for unknown indication
     Dosage: TABLET, 1000 MG (MILLIGRAM)
     Route: 048
  6. DAPAGLIFLOZIN [Concomitant]
     Active Substance: DAPAGLIFLOZIN
     Indication: Product used for unknown indication
     Dosage: TABLET, 10 MG (MILLIGRAM)
     Route: 048
  7. SEMAGLUTIDE [Concomitant]
     Active Substance: SEMAGLUTIDE
     Indication: Product used for unknown indication
     Dosage: INJECTIEVLOEISTOF, 1 MG/DOSIS (MILLIGRAM PER DOSIS)
     Route: 065

REACTIONS (4)
  - Syncope [Recovered/Resolved]
  - Malaise [Recovered/Resolved]
  - Nausea [Recovered/Resolved]
  - Hypotension [Recovered/Resolved]
